FAERS Safety Report 8573249-4 (Version None)
Quarter: 2012Q3

REPORT INFORMATION
  Report Type: 
  Country: None (occurrence: None)
  Receive Date: 20120806
  Receipt Date: 20120730
  Transmission Date: 20120928
  Serious: Yes (Other)
  Sender: FDA-Public Use
  Company Number: CA-ROCHE-1013609

PATIENT
  Sex: Female

DRUGS (11)
  1. XOLAIR [Suspect]
     Indication: ASTHMA
     Route: 058
     Dates: start: 20090422
  2. TRAZODONE HYDROCHLORIDE [Concomitant]
  3. SINGULAIR [Concomitant]
  4. FLUTICASONE PROPIONATE [Concomitant]
  5. FLUTICASONE FUROATE [Concomitant]
  6. ALVESCO [Concomitant]
  7. THEOPHYLLINE [Concomitant]
  8. ALBUTEROL SULATE [Concomitant]
  9. OMEPRAZOLE [Concomitant]
  10. ESCITALOPRAM [Concomitant]
  11. ALENDRONATE SODIUM [Concomitant]

REACTIONS (7)
  - LIGAMENT SPRAIN [None]
  - SKIN DISCOLOURATION [None]
  - SWELLING [None]
  - HERPES ZOSTER [None]
  - FOOT FRACTURE [None]
  - PAIN IN EXTREMITY [None]
  - OEDEMA [None]
